FAERS Safety Report 17263253 (Version 1)
Quarter: 2020Q1

REPORT INFORMATION
  Report Type: Spontaneous
  Country: US (occurrence: US)
  Receive Date: 20200111
  Receipt Date: 20200111
  Transmission Date: 20200409
  Serious: Yes (Other)
  Sender: FDA-Public Use
  Company Number: None

PATIENT
  Age: 51 Year
  Weight: 74.25 kg

DRUGS (1)
  1. DENOREX EXTRA STRENGTH [Suspect]
     Active Substance: SALICYLIC ACID
     Indication: DANDRUFF
     Dosage: ?          OTHER STRENGTH:1;QUANTITY:1 1 SHAMPOO;OTHER ROUTE:HAIR CARE?
     Dates: start: 20200102, end: 20200106

REACTIONS (4)
  - Blister [None]
  - Skin burning sensation [None]
  - Skin discolouration [None]
  - Rash [None]

NARRATIVE: CASE EVENT DATE: 20200111
